FAERS Safety Report 7654173-8 (Version None)
Quarter: 2011Q3

REPORT INFORMATION
  Report Type: 
  Country: None (occurrence: None)
  Receive Date: 20110803
  Receipt Date: 20110803
  Transmission Date: 20111222
  Serious: Yes (Life-Threatening, Hospitalization)
  Sender: FDA-Public Use
  Company Number: PHHO2007US18861

PATIENT
  Sex: Female
  Weight: 49.9 kg

DRUGS (3)
  1. EXELON [Suspect]
     Indication: DEMENTIA ALZHEIMER'S TYPE
     Dosage: UNK
     Dates: start: 20070908, end: 20070927
  2. COUMADIN [Concomitant]
  3. NO TREATMENT RECEIVED [Suspect]
     Indication: DEMENTIA ALZHEIMER'S TYPE
     Dosage: NO TREATMENT

REACTIONS (2)
  - HAEMATURIA [None]
  - RECTAL HAEMORRHAGE [None]
